FAERS Safety Report 12365502 (Version 1)
Quarter: 2016Q2

REPORT INFORMATION
  Report Type: Spontaneous
  Country: US (occurrence: US)
  Receive Date: 20160512
  Receipt Date: 20160512
  Transmission Date: 20160815
  Serious: Yes (Death)
  Sender: FDA-Public Use
  Company Number: PHEH2016US011804

PATIENT
  Age: 75 Year
  Sex: Female

DRUGS (1)
  1. HYCAMTIN [Suspect]
     Active Substance: TOPOTECAN HYDROCHLORIDE
     Indication: LUNG NEOPLASM MALIGNANT
     Dosage: 3 MG, ONCE DAILY FOR 05 DAYS EVERY 21 DAYS
     Route: 048
     Dates: start: 20160415

REACTIONS (1)
  - Death [Fatal]

NARRATIVE: CASE EVENT DATE: 20160506
